FAERS Safety Report 4896071-9 (Version None)
Quarter: 2005Q4

REPORT INFORMATION
  Report Type: 
  Country: None (occurrence: None)
  Receive Date: 20051220
  Receipt Date: 20050526
  Transmission Date: 20060501
  Serious: Yes (Other)
  Sender: FDA-Public Use
  Company Number: US126923

PATIENT
  Age: 71 Year
  Sex: Male

DRUGS (4)
  1. ENBREL [Suspect]
     Indication: RHEUMATOID ARTHRITIS
     Dosage: 25 MG, 2 IN 1 WEEKS, SC
     Route: 058
     Dates: start: 20000101
  2. HYDROXYCHLOROQUINE SULFATE [Concomitant]
  3. PREDNISONE [Concomitant]
  4. CELECOXIB [Concomitant]

REACTIONS (3)
  - CONDITION AGGRAVATED [None]
  - MALIGNANT MELANOMA [None]
  - RHEUMATOID ARTHRITIS [None]
